FAERS Safety Report 6398267-6 (Version None)
Quarter: 2009Q4

REPORT INFORMATION
  Report Type: 
  Country: None (occurrence: None)
  Receive Date: 20091007
  Receipt Date: 20090928
  Transmission Date: 20100525
  Serious: Yes (Death)
  Sender: FDA-Public Use
  Company Number: CLOF-1000078

PATIENT
  Age: 73 Year

DRUGS (2)
  1. EVOLTRA (CLOFARABINE) SOLUTION FOR INFUSION [Suspect]
     Indication: ACUTE MYELOID LEUKAEMIA
     Dates: start: 20071218, end: 20071222
  2. DAUNORUBICIN HCL [Suspect]
     Indication: ACUTE MYELOID LEUKAEMIA
     Dates: start: 20071218, end: 20071222

REACTIONS (2)
  - HAEMOPTYSIS [None]
  - PULMONARY HAEMORRHAGE [None]
